FAERS Safety Report 5468513-1 (Version None)
Quarter: 2007Q3

REPORT INFORMATION
  Report Type: 
  Country: None (occurrence: None)
  Receive Date: 20070926
  Receipt Date: 20070801
  Transmission Date: 20080115
  Serious: No
  Sender: FDA-Public Use
  Company Number: US-BRISTOL-MYERS SQUIBB COMPANY-13865084

PATIENT
  Sex: Female
  Weight: 82 kg

DRUGS (12)
  1. ORENCIA [Suspect]
     Indication: RHEUMATOID ARTHRITIS
  2. COPAXONE [Concomitant]
  3. CELEBREX [Concomitant]
  4. BACLOFEN [Concomitant]
  5. LEXAPRO [Concomitant]
  6. METOPROLOL [Concomitant]
  7. FOLIC ACID [Concomitant]
  8. METHOTREXATE BRAND UNKNOWN [Concomitant]
  9. PROVIGIL [Concomitant]
  10. CALCIUM [Concomitant]
  11. VITAMIN D [Concomitant]
  12. RESTASIS [Concomitant]

REACTIONS (1)
  - FATIGUE [None]
